FAERS Safety Report 6636551-9 (Version None)
Quarter: 2010Q1

REPORT INFORMATION
  Report Type: 
  Country: None (occurrence: None)
  Receive Date: 20100310
  Receipt Date: 20100301
  Transmission Date: 20100710
  Serious: Yes (Hospitalization)
  Sender: FDA-Public Use
  Company Number: TCI2010A00516

PATIENT
  Age: 70 Year
  Sex: Male

DRUGS (3)
  1. ACTOS [Suspect]
     Indication: DIABETES MELLITUS
     Dosage: 30 MG (30 MG, 1 IN 1 D) PER ORAL
     Route: 048
     Dates: start: 20100101, end: 20100208
  2. NATEGLINIDE [Suspect]
     Indication: DIABETES MELLITUS
     Dosage: 810 MG (270 MG, 3 IN 1 D) PER ORAL
     Route: 048
     Dates: start: 20090101, end: 20100208
  3. LOSARTAN POTASSIUM [Suspect]
     Indication: HYPERTENSION
     Dosage: 100 MG (50 MG, 2 IN 1 D) PER ORAL
     Route: 048
     Dates: start: 20090101, end: 20100208

REACTIONS (6)
  - CEREBRAL ARTERY STENOSIS [None]
  - DRUG INTERACTION [None]
  - DYSKINESIA [None]
  - LEUKOARAIOSIS [None]
  - PARANASAL SINUS MUCOSAL HYPERTROPHY [None]
  - VASCULAR CALCIFICATION [None]
